FAERS Safety Report 8465400-1 (Version None)
Quarter: 2012Q2

REPORT INFORMATION
  Report Type: 
  Country: None (occurrence: None)
  Receive Date: 20120626
  Receipt Date: 20120621
  Transmission Date: 20120825
  Serious: Yes (Other)
  Sender: FDA-Public Use
  Company Number: US-PFIZER INC-2012093640

PATIENT
  Sex: Female

DRUGS (4)
  1. LYRICA [Suspect]
     Dosage: UNK
  2. CARDURA [Suspect]
     Dosage: UNK
  3. DETROL [Suspect]
     Dosage: UNK
  4. DETROL LA [Suspect]

REACTIONS (3)
  - SURGERY [None]
  - SPINAL OPERATION [None]
  - MEMORY IMPAIRMENT [None]
